FAERS Safety Report 11292853 (Version 1)
Quarter: 2015Q3

REPORT INFORMATION
  Report Type: Report from Study
  Country: US (occurrence: US)
  Receive Date: 20150722
  Receipt Date: 20150722
  Transmission Date: 20151125
  Serious: Yes (Hospitalization)
  Sender: FDA-Public Use
  Company Number: US-TAKEDA-2015MPI004693

PATIENT
  Sex: Male

DRUGS (5)
  1. VELCADE [Suspect]
     Active Substance: BORTEZOMIB
     Dosage: 3.4 MG, UNK
     Route: 058
     Dates: start: 20150501
  2. VELCADE [Suspect]
     Active Substance: BORTEZOMIB
     Dosage: 1.6 MG, UNK
     Route: 065
     Dates: start: 20150505
  3. VELCADE [Suspect]
     Active Substance: BORTEZOMIB
     Dosage: 1.6 UNK, UNK
     Route: 065
     Dates: start: 20150502
  4. VELCADE [Suspect]
     Active Substance: BORTEZOMIB
     Indication: KAPOSI^S SARCOMA
     Dosage: 3.4 MG, UNK
     Route: 058
  5. VELCADE [Suspect]
     Active Substance: BORTEZOMIB
     Dosage: 3.4 MG, UNK
     Route: 058
     Dates: start: 20150504

REACTIONS (3)
  - Off label use [Unknown]
  - Extra dose administered [Unknown]
  - Unevaluable event [Unknown]
